FAERS Safety Report 8433907-9 (Version None)
Quarter: 2012Q2

REPORT INFORMATION
  Report Type: 
  Country: None (occurrence: None)
  Receive Date: 20120613
  Receipt Date: 20120605
  Transmission Date: 20120825
  Serious: Yes (Other)
  Sender: FDA-Public Use
  Company Number: US-US-EMD SERONO, INC.-7138426

PATIENT
  Sex: Female

DRUGS (3)
  1. VITAMIN B-12 [Concomitant]
     Indication: VITAMIN B12 DEFICIENCY
  2. RITUXAN [Concomitant]
     Indication: RHEUMATOID ARTHRITIS
  3. REBIF [Suspect]
     Indication: MULTIPLE SCLEROSIS
     Route: 058
     Dates: start: 20120507

REACTIONS (2)
  - INTERVERTEBRAL DISC PROTRUSION [None]
  - HYPERHIDROSIS [None]
